FAERS Safety Report 20062019 (Version 1)
Quarter: 2021Q4

REPORT INFORMATION
  Report Type: Spontaneous
  Country: DE (occurrence: DE)
  Receive Date: 20211112
  Receipt Date: 20211112
  Transmission Date: 20220303
  Serious: No
  Sender: FDA-Public Use
  Company Number: DE-ALKEM LABORATORIES LIMITED-DE-ALKEM-2021-06525

PATIENT
  Sex: Female

DRUGS (1)
  1. PREGABALIN [Suspect]
     Active Substance: PREGABALIN
     Indication: Nerve injury
     Dosage: UNK
     Route: 048

REACTIONS (6)
  - Product substitution issue [Unknown]
  - Injection site pain [Unknown]
  - Nerve injury [Unknown]
  - Product use complaint [Unknown]
  - Syringe issue [Unknown]
  - Pain in extremity [Unknown]
